FAERS Safety Report 4926594-5 (Version None)
Quarter: 2006Q1

REPORT INFORMATION
  Report Type: 
  Country: None (occurrence: None)
  Receive Date: 20060228
  Receipt Date: 20050505
  Transmission Date: 20060701
  Serious: Yes (Life-Threatening)
  Sender: FDA-Public Use
  Company Number: US-GLAXOSMITHKLINE-A0557586A

PATIENT
  Age: 28 Year
  Sex: Female
  Weight: 66.4 kg

DRUGS (3)
  1. LAMICTAL [Suspect]
     Route: 048
     Dates: start: 20050303, end: 20050310
  2. ADDERALL 10 [Concomitant]
     Dosage: 10MG PER DAY
     Route: 048
     Dates: start: 20040921
  3. SEROQUEL [Concomitant]
     Dosage: 25MG PER DAY
     Route: 048
     Dates: start: 20050210

REACTIONS (2)
  - MOUTH ULCERATION [None]
  - RASH [None]
